FAERS Safety Report 21941553 (Version 1)
Quarter: 2023Q1

REPORT INFORMATION
  Report Type: Report from Study
  Country: US (occurrence: US)
  Receive Date: 20230202
  Receipt Date: 20230202
  Transmission Date: 20230417
  Serious: No
  Sender: FDA-Public Use
  Company Number: US-EXELIXIS-CABO-22054710

PATIENT
  Age: 84 Year
  Sex: Female

DRUGS (1)
  1. CABOMETYX [Suspect]
     Active Substance: CABOZANTINIB S-MALATE
     Indication: Metastases to lung
     Dosage: 40 MG, QD
     Route: 048
     Dates: start: 20220717

REACTIONS (17)
  - Hyperkeratosis [Unknown]
  - Regurgitation [Unknown]
  - Visual impairment [Unknown]
  - Renal pain [Unknown]
  - Musculoskeletal chest pain [Unknown]
  - Erythema [Unknown]
  - Blood pressure decreased [Unknown]
  - Back pain [Unknown]
  - Cough [Unknown]
  - Dyspnoea [Unknown]
  - Headache [Unknown]
  - Fatigue [Unknown]
  - Diarrhoea [Unknown]
  - Nausea [Unknown]
  - Pain in extremity [Unknown]
  - Vomiting [Unknown]
  - Off label use [Unknown]

NARRATIVE: CASE EVENT DATE: 20220728
